FAERS Safety Report 7394530-0 (Version None)
Quarter: 2011Q2

REPORT INFORMATION
  Report Type: 
  Country: None (occurrence: None)
  Receive Date: 20110405
  Receipt Date: 20110330
  Transmission Date: 20111010
  Serious: Yes (Life-Threatening, Other)
  Sender: FDA-Public Use
  Company Number: PHHY2011US26765

PATIENT
  Sex: Female

DRUGS (2)
  1. ASPIRIN [Concomitant]
  2. DIOVAN HCT [Suspect]
     Dosage: 160 MG OF VALS AND 25 MG OF HYD, PER DAY

REACTIONS (10)
  - LOSS OF CONSCIOUSNESS [None]
  - GAIT DISTURBANCE [None]
  - JOINT INJURY [None]
  - FALL [None]
  - LIMB INJURY [None]
  - FEELING ABNORMAL [None]
  - SYNCOPE [None]
  - DYSPNOEA [None]
  - DIZZINESS [None]
  - CEREBROVASCULAR ACCIDENT [None]
